FAERS Safety Report 24985219 (Version 1)
Quarter: 2025Q1

REPORT INFORMATION
  Report Type: Report from Study
  Country: KR (occurrence: KR)
  Receive Date: 20250219
  Receipt Date: 20250219
  Transmission Date: 20250408
  Serious: Yes (Other)
  Sender: CELLTRION
  Company Number: KR-CELLTRION INC.-2025KR004741

PATIENT

DRUGS (1)
  1. INFLIXIMAB-DYYB [Suspect]
     Active Substance: INFLIXIMAB-DYYB
     Indication: Rheumatoid arthritis
     Dates: start: 20240819

REACTIONS (3)
  - Cholecystectomy [Recovered/Resolved]
  - Femoral hernia repair [Recovered/Resolved]
  - Cholecystitis [Recovered/Resolved]
